FAERS Safety Report 15004539 (Version 1)
Quarter: 2018Q2

REPORT INFORMATION
  Report Type: Report from Study
  Country: JP (occurrence: JP)
  Receive Date: 20180613
  Receipt Date: 20180613
  Transmission Date: 20180711
  Serious: Yes (Death, Hospitalization)
  Sender: FDA-Public Use
  Company Number: JP-AMGEN-JPNCT2018079814

PATIENT
  Age: 81 Year
  Sex: Female

DRUGS (8)
  1. DARBEPOETIN ALFA [Suspect]
     Active Substance: DARBEPOETIN ALFA
     Indication: MYELODYSPLASTIC SYNDROME
     Dosage: 120 MUG, Q2WK
     Route: 058
     Dates: start: 20150423, end: 20150910
  2. MAGLAX [Concomitant]
     Active Substance: MAGNESIUM OXIDE
     Indication: CONSTIPATION
     Dosage: 990 MG, QD
     Route: 048
  3. FERROMIA [Concomitant]
     Active Substance: SODIUM FERROUS CITRATE
     Indication: MYELODYSPLASTIC SYNDROME
     Dosage: 100 MG, QD
     Route: 048
     Dates: start: 20150826
  4. NEORAL [Concomitant]
     Active Substance: CYCLOSPORINE
     Indication: MYELODYSPLASTIC SYNDROME
     Dosage: 100 MG, QD
     Route: 048
  5. DARBEPOETIN ALFA [Suspect]
     Active Substance: DARBEPOETIN ALFA
     Dosage: 120 MUG, QD
     Route: 058
     Dates: start: 20151007, end: 20151007
  6. MICARDIS [Concomitant]
     Active Substance: TELMISARTAN
     Indication: HYPERTENSION
     Dosage: 40 MG, QD
     Route: 048
  7. PARIET [Concomitant]
     Active Substance: RABEPRAZOLE SODIUM
     Indication: GASTROOESOPHAGEAL REFLUX DISEASE
     Dosage: 10 MG, QD
     Route: 048
  8. ACECOL [Concomitant]
     Active Substance: TEMOCAPRIL HYDROCHLORIDE
     Indication: HYPERTENSION
     Dosage: 2 MG, QD
     Route: 048

REACTIONS (2)
  - Urinary tract infection [Recovering/Resolving]
  - Death [Fatal]

NARRATIVE: CASE EVENT DATE: 20170328
